FAERS Safety Report 21438972 (Version 2)
Quarter: 2022Q4

REPORT INFORMATION
  Report Type: Spontaneous
  Country: JP (occurrence: JP)
  Receive Date: 20221011
  Receipt Date: 20221109
  Transmission Date: 20230113
  Serious: Yes (Hospitalization)
  Sender: FDA-Public Use
  Company Number: JP-NBI-J202216896BIPI

PATIENT

DRUGS (3)
  1. OFEV [Suspect]
     Active Substance: NINTEDANIB
     Indication: Interstitial lung disease
     Route: 048
     Dates: end: 20220912
  2. UFT [Concomitant]
     Active Substance: TEGAFUR\URACIL
     Indication: Neoplasm malignant
     Route: 048
     Dates: end: 20220912
  3. UFT [Concomitant]
     Active Substance: TEGAFUR\URACIL
     Route: 048

REACTIONS (1)
  - Cerebrovascular disorder [Unknown]

NARRATIVE: CASE EVENT DATE: 20220912
